FAERS Safety Report 20785048 (Version 1)
Quarter: 2022Q2

REPORT INFORMATION
  Report Type: Report from Study
  Country: US (occurrence: US)
  Receive Date: 20220504
  Receipt Date: 20220504
  Transmission Date: 20220721
  Serious: Yes (Hospitalization)
  Sender: FDA-Public Use
  Company Number: US-GILEAD-2022-0580339

PATIENT
  Age: 58 Year
  Sex: Female

DRUGS (23)
  1. AMBRISENTAN [Suspect]
     Active Substance: AMBRISENTAN
     Indication: Pulmonary arterial hypertension
     Dosage: 10 MG, QD
     Route: 065
     Dates: start: 20220125
  2. ALLOPURINOL [Concomitant]
     Active Substance: ALLOPURINOL
  3. ASPIRIN [Concomitant]
     Active Substance: ASPIRIN
  4. CALCITRIOL [Concomitant]
     Active Substance: CALCITRIOL
  5. CLOPIDOGREL [Concomitant]
     Active Substance: CLOPIDOGREL BISULFATE
  6. CORLANOR [Concomitant]
     Active Substance: IVABRADINE HYDROCHLORIDE
  7. DOXYCYCLINE [Concomitant]
     Active Substance: DOXYCYCLINE
  8. FERRETTS [Concomitant]
  9. FERROUS SULFATE [Concomitant]
     Active Substance: FERROUS SULFATE
  10. FOLIC ACID [Concomitant]
     Active Substance: FOLIC ACID
  11. HYDROCODONE BITARTRATE AND ACETAMINOPHEN [Concomitant]
     Active Substance: ACETAMINOPHEN\HYDROCODONE BITARTRATE
  12. INSULIN NOS [Concomitant]
     Active Substance: INSULIN NOS
  13. JULUCA [Concomitant]
     Active Substance: DOLUTEGRAVIR SODIUM\RILPIVIRINE HYDROCHLORIDE
  14. MAGNESIUM OXIDE [Concomitant]
     Active Substance: MAGNESIUM OXIDE
  15. METOLAZONE [Concomitant]
     Active Substance: METOLAZONE
  16. METOPROLOL [Concomitant]
     Active Substance: METOPROLOL
  17. POTASSIUM CHLORIDE [Concomitant]
     Active Substance: POTASSIUM CHLORIDE
  18. ERYTHROPOIETIN [Concomitant]
     Active Substance: ERYTHROPOIETIN
  19. SILDENAFIL [Concomitant]
     Active Substance: SILDENAFIL
  20. SUCRALFATE [Concomitant]
     Active Substance: SUCRALFATE
  21. TORSEMIDE [Concomitant]
     Active Substance: TORSEMIDE
  22. TRADJENTA [Concomitant]
     Active Substance: LINAGLIPTIN
  23. VITAMIN D NOS [Concomitant]
     Active Substance: VITAMIN D NOS

REACTIONS (1)
  - Furuncle [Unknown]
